FAERS Safety Report 4514090-9 (Version None)
Quarter: 2004Q4

REPORT INFORMATION
  Report Type: 
  Country: None (occurrence: None)
  Receive Date: 20041124
  Receipt Date: 20041117
  Transmission Date: 20050328
  Serious: Yes (Hospitalization, Other)
  Sender: FDA-Public Use
  Company Number: USA041183717

PATIENT
  Age: 87 Year
  Sex: Female

DRUGS (1)
  1. CYMBALTA [Suspect]
     Indication: DEPRESSION
     Dosage: 60 MG DAY
     Dates: start: 20041028

REACTIONS (6)
  - BLOOD SODIUM DECREASED [None]
  - DELIRIUM [None]
  - DIZZINESS [None]
  - FALL [None]
  - OEDEMA [None]
  - PELVIC FRACTURE [None]
